FAERS Safety Report 6717513-X (Version None)
Quarter: 2010Q2

REPORT INFORMATION
  Report Type: 
  Country: None (occurrence: None)
  Receive Date: 20100510
  Receipt Date: 20100426
  Transmission Date: 20101027
  Serious: Yes (Other)
  Sender: FDA-Public Use
  Company Number: FR-GENENTECH-301288

PATIENT

DRUGS (1)
  1. RITUXIMAB [Suspect]
     Indication: THROMBOCYTOPENIC PURPURA
     Dosage: 375 MG/M2, 1/WEEK
     Route: 065

REACTIONS (1)
  - ANAPHYLACTIC REACTION [None]
